FAERS Safety Report 10598443 (Version 1)
Quarter: 2014Q4

REPORT INFORMATION
  Report Type: Spontaneous
  Country: US (occurrence: None)
  Receive Date: 20141119
  Receipt Date: 20141119
  Transmission Date: 20150529
  Serious: Yes (Other)
  Sender: FDA-Public Use
  Company Number: US-MDCO-14-00291

PATIENT
  Age: 80 Year
  Sex: Female

DRUGS (3)
  1. ORBACTIV [Suspect]
     Active Substance: ORITAVANCIN
     Indication: CELLULITIS
     Dosage: THERAPY DATES: 10:00 - 11:30, 250 CC OF FLUID, NOT REPORTED?
  2. ORBACTIV [Suspect]
     Active Substance: ORITAVANCIN
     Indication: ABSCESS LIMB
     Dosage: THERAPY DATES: 10:00 - 11:30, 250 CC OF FLUID, NOT REPORTED?
  3. LASIX [Concomitant]
     Active Substance: FUROSEMIDE

REACTIONS (11)
  - Pruritus [None]
  - Back pain [None]
  - Wheezing [None]
  - Erythema [None]
  - Anxiety [None]
  - Blood pressure increased [None]
  - Cardiac failure congestive [None]
  - Flushing [None]
  - Blood pressure decreased [None]
  - Dyspnoea [None]
  - Red man syndrome [None]
